FAERS Safety Report 13576164 (Version 3)
Quarter: 2017Q3

REPORT INFORMATION
  Report Type: Spontaneous
  Country: US (occurrence: US)
  Receive Date: 20170524
  Receipt Date: 20170717
  Transmission Date: 20171127
  Serious: Yes (Hospitalization, Other)
  Sender: FDA-Public Use
  Company Number: US-AUROBINDO-AUR-APL-2017-34320

PATIENT
  Age: 72 Year
  Sex: Male
  Weight: 103 kg

DRUGS (10)
  1. DIVALPROEX [Interacting]
     Active Substance: DIVALPROEX SODIUM
     Dosage: 2000 MG, UNK
     Route: 065
     Dates: start: 20150912
  2. ACETYLSALICYLIC ACID [Interacting]
     Active Substance: ASPIRIN
     Indication: PRODUCT USED FOR UNKNOWN INDICATION
     Dosage: UNK
     Route: 065
     Dates: start: 20150831
  3. MIDAZOLAM [Concomitant]
     Active Substance: MIDAZOLAM HYDROCHLORIDE
     Indication: MYOCLONUS
  4. DIVALPROEX [Interacting]
     Active Substance: DIVALPROEX SODIUM
     Dosage: ON HD13
     Route: 065
     Dates: start: 20150914
  5. DIVALPROEX [Interacting]
     Active Substance: DIVALPROEX SODIUM
     Dosage: 40 MG/KG, UNK
     Route: 065
     Dates: start: 20150913
  6. LEVETIRACETAM. [Concomitant]
     Active Substance: LEVETIRACETAM
     Indication: MYOCLONUS
     Route: 065
  7. DIVALPROEX [Interacting]
     Active Substance: DIVALPROEX SODIUM
     Dosage: UNK, ON HD13, BOLUS
     Route: 065
  8. PROPOFOL. [Interacting]
     Active Substance: PROPOFOL
     Indication: PRODUCT USED FOR UNKNOWN INDICATION
     Dosage: UNK
     Route: 065
     Dates: start: 20150903
  9. DIVALPROEX [Suspect]
     Active Substance: DIVALPROEX SODIUM
     Indication: MYOCLONUS
     Dosage: 30 MG/KG, UNK
     Route: 065
     Dates: start: 20150901
  10. DIVALPROEX [Interacting]
     Active Substance: DIVALPROEX SODIUM
     Dosage: ON HD14
     Route: 065

REACTIONS (5)
  - Drug level changed [Unknown]
  - Hepatic function abnormal [Unknown]
  - Drug interaction [Unknown]
  - Hyperammonaemia [Unknown]
  - Drug prescribing error [Unknown]
